FAERS Safety Report 6108753-1 (Version None)
Quarter: 2009Q1

REPORT INFORMATION
  Report Type: 
  Country: None (occurrence: None)
  Receive Date: 20090310
  Receipt Date: 20090225
  Transmission Date: 20090719
  Serious: Yes (Hospitalization)
  Sender: FDA-Public Use
  Company Number: DE-ELI_LILLY_AND_COMPANY-DE200902001955

PATIENT

DRUGS (2)
  1. GEMCITABINE HCL [Suspect]
     Indication: LYMPHOMA
     Dosage: 1845 MG, UNK
     Dates: start: 20051125
  2. OXALIPLATIN [Suspect]
     Indication: LYMPHOMA
     Dosage: 129 MG, UNK
     Dates: start: 20051128

REACTIONS (2)
  - GENERAL PHYSICAL CONDITION ABNORMAL [None]
  - MYCOBACTERIUM AVIUM COMPLEX INFECTION [None]
